FAERS Safety Report 10769151 (Version 1)
Quarter: 2015Q1

REPORT INFORMATION
  Report Type: Spontaneous
  Country: TR (occurrence: None)
  Receive Date: 20150204
  Receipt Date: 20150204
  Transmission Date: 20150721
  Serious: Yes (Hospitalization)
  Sender: FDA-Public Use
  Company Number: TR-ZYDUS-006467

PATIENT
  Age: 46 Year
  Sex: Female

DRUGS (1)
  1. BUPROPION (BUPROPION) [Suspect]
     Active Substance: BUPROPION
     Indication: SMOKING CESSATION THERAPY

REACTIONS (1)
  - Pityriasis rosea [None]
